FAERS Safety Report 7252355-0 (Version None)
Quarter: 2011Q1

REPORT INFORMATION
  Report Type: 
  Country: None (occurrence: None)
  Receive Date: 20110129
  Receipt Date: 20100406
  Transmission Date: 20110831
  Serious: No
  Sender: FDA-Public Use
  Company Number: PR-ABBOTT-10P-131-0636609-00

PATIENT
  Sex: Male
  Weight: 104.42 kg

DRUGS (3)
  1. HUMIRA [Suspect]
     Route: 058
     Dates: start: 20090701, end: 20091201
  2. HYZAAR [Concomitant]
     Indication: HYPERTENSION
     Route: 048
  3. HUMIRA [Suspect]
     Indication: PSORIASIS
     Route: 058
     Dates: start: 20091201

REACTIONS (3)
  - PSORIASIS [None]
  - MALAISE [None]
  - VIRAL INFECTION [None]
